FAERS Safety Report 9843068 (Version 1)
Quarter: 2014Q1

REPORT INFORMATION
  Report Type: Spontaneous
  Country: US (occurrence: US)
  Receive Date: 20140124
  Receipt Date: 20140124
  Transmission Date: 20141002
  Serious: Yes (Other)
  Sender: FDA-Public Use
  Company Number: US-ABBVIE-14P-163-1189504-00

PATIENT
  Sex: Female
  Weight: 59.02 kg

DRUGS (10)
  1. MULTAQ [Concomitant]
     Indication: ATRIAL FIBRILLATION
     Route: 048
     Dates: start: 2012
  2. VICODIN ES 7.5/300 (MIKART) [Suspect]
     Indication: PAIN
     Dosage: 7.5 - 300 MG
     Route: 065
  3. VICODIN ES 7.5/300 (MIKART) [Suspect]
     Dosage: 10/300 MG 2 - 3 TIMES DAILY
     Route: 065
  4. XARELTO [Suspect]
     Indication: ATRIAL FIBRILLATION
     Route: 048
  5. ASPIRIN [Suspect]
     Indication: COAGULOPATHY
     Route: 048
     Dates: start: 2008
  6. TENORMINE [Concomitant]
     Indication: PRODUCT USED FOR UNKNOWN INDICATION
     Route: 048
  7. AVAPRO [Concomitant]
     Indication: CARDIAC DISORDER
     Route: 048
  8. SYNTHROID [Concomitant]
     Indication: THYROID DISORDER
     Route: 048
  9. XANAX [Concomitant]
     Indication: ANXIETY
     Route: 048
     Dates: start: 2008
  10. SOMA [Concomitant]
     Indication: MUSCLE RELAXANT THERAPY
     Route: 048

REACTIONS (14)
  - Systemic lupus erythematosus [Not Recovered/Not Resolved]
  - Raynaud^s phenomenon [Not Recovered/Not Resolved]
  - Petechiae [Not Recovered/Not Resolved]
  - Wound haemorrhage [Recovered/Resolved]
  - Herpes zoster [Not Recovered/Not Resolved]
  - Back pain [Not Recovered/Not Resolved]
  - Contusion [Recovered/Resolved]
  - Joint injury [Recovered/Resolved]
  - Fall [Recovered/Resolved]
  - Bone erosion [Not Recovered/Not Resolved]
  - Rheumatoid nodule [Not Recovered/Not Resolved]
  - Blood pressure increased [Recovered/Resolved]
  - Rash pruritic [Not Recovered/Not Resolved]
  - Rash erythematous [Not Recovered/Not Resolved]
